FAERS Safety Report 14393974 (Version 1)
Quarter: 2018Q1

REPORT INFORMATION
  Report Type: Spontaneous
  Country: CH (occurrence: CH)
  Receive Date: 20180116
  Receipt Date: 20180116
  Transmission Date: 20180509
  Serious: Yes (Other)
  Sender: FDA-Public Use
  Company Number: CH-BAYER-2018-003973

PATIENT
  Age: 46 Year
  Sex: Female

DRUGS (3)
  1. ASPIRIN. [Suspect]
     Active Substance: ASPIRIN
     Indication: SPLENIC ARTERY THROMBOSIS
  2. AZATHIOPRINE. [Concomitant]
     Active Substance: AZATHIOPRINE
     Dosage: UNK
  3. ASPIRIN. [Suspect]
     Active Substance: ASPIRIN
     Indication: SPLENIC INFARCTION

REACTIONS (5)
  - Off label use [None]
  - Product use in unapproved indication [None]
  - Ejection fraction decreased [None]
  - Coronary artery thrombosis [None]
  - Myocardial infarction [None]
